FAERS Safety Report 7516573-6 (Version None)
Quarter: 2011Q2

REPORT INFORMATION
  Report Type: 
  Country: None (occurrence: None)
  Receive Date: 20110601
  Receipt Date: 20110520
  Transmission Date: 20111010
  Serious: Yes (Disabling, Other)
  Sender: FDA-Public Use
  Company Number: FR-SANOFI-AVENTIS-2011SA005823

PATIENT
  Sex: Male
  Weight: 72 kg

DRUGS (2)
  1. ALFUZOSIN HYDROCHLORIDE [Suspect]
     Route: 048
     Dates: start: 20101201, end: 20110101
  2. ALFUZOSIN HYDROCHLORIDE [Suspect]
     Route: 048
     Dates: start: 20101201, end: 20101201

REACTIONS (3)
  - HEMIANOPIA [None]
  - OPTIC ISCHAEMIC NEUROPATHY [None]
  - VISUAL ACUITY REDUCED [None]
